FAERS Safety Report 9435943 (Version 2)
Quarter: 2013Q3

REPORT INFORMATION
  Report Type: Spontaneous
  Country: US (occurrence: US)
  Receive Date: 20130801
  Receipt Date: 20130807
  Transmission Date: 20140515
  Serious: Yes (Hospitalization, Other)
  Sender: FDA-Public Use
  Company Number: ALCN2013US000630

PATIENT
  Age: 42 Year
  Sex: Female

DRUGS (13)
  1. SYSTANE BALANCE RESTORATIVE FORMULA [Suspect]
     Indication: DRY EYE
     Dosage: UNK
     Route: 047
     Dates: start: 20130713, end: 20130715
  2. AMBIEN [Concomitant]
     Dosage: UNK
  3. ARICEPT [Concomitant]
     Dosage: UNK
  4. EFFEXOR [Concomitant]
     Dosage: UNK
  5. GABAPENTIN [Concomitant]
     Dosage: UNK
  6. LORTAB [Concomitant]
     Dosage: UNK
  7. PILOCARPINE [Concomitant]
     Dosage: UNK
  8. PLAQUENIL [Concomitant]
     Dosage: UNK
  9. PROMETHAZINE [Concomitant]
     Dosage: UNK
  10. SALSALATE [Concomitant]
     Dosage: UNK
  11. TRAMADOL [Concomitant]
     Dosage: UNK
  12. VALIUM [Concomitant]
     Dosage: UNK
  13. VERAPAMIL [Concomitant]
     Dosage: UNK

REACTIONS (5)
  - Optic neuritis [Recovering/Resolving]
  - Visual acuity reduced [Recovering/Resolving]
  - Vision blurred [Recovering/Resolving]
  - Ocular hyperaemia [Recovering/Resolving]
  - Expired drug administered [Unknown]
